FAERS Safety Report 7224158-4 (Version None)
Quarter: 2011Q1

REPORT INFORMATION
  Report Type: 
  Country: None (occurrence: None)
  Receive Date: 20110113
  Receipt Date: 20110110
  Transmission Date: 20110831
  Serious: No
  Sender: FDA-Public Use
  Company Number: US-BIOGENIDEC-2011BI001345

PATIENT
  Age: 59 Year
  Sex: Female

DRUGS (1)
  1. AVONEX [Suspect]
     Indication: MULTIPLE SCLEROSIS
     Route: 030
     Dates: start: 20100429, end: 20101224

REACTIONS (6)
  - CONTUSION [None]
  - PAIN [None]
  - DYSPNOEA [None]
  - COUGH [None]
  - HEADACHE [None]
  - OEDEMA PERIPHERAL [None]
